FAERS Safety Report 11215538 (Version 1)
Quarter: 2015Q2

REPORT INFORMATION
  Report Type: Spontaneous
  Country: CH (occurrence: CH)
  Receive Date: 20150624
  Receipt Date: 20150624
  Transmission Date: 20150821
  Serious: Yes (Hospitalization)
  Sender: FDA-Public Use
  Company Number: CH-MEDA-2015060048

PATIENT
  Age: 86 Year
  Sex: Female

DRUGS (15)
  1. TORASEMIDE [Suspect]
     Active Substance: TORSEMIDE
     Indication: HYPERTENSION
     Route: 048
     Dates: end: 201505
  2. CONCOR [Concomitant]
     Active Substance: BISOPROLOL FUMARATE
  3. ANTRA [Concomitant]
     Active Substance: OMEPRAZOLE
  4. FEIGENSIRUP [Concomitant]
  5. ZANIDIP [Concomitant]
     Active Substance: LERCANIDIPINE HYDROCHLORIDE
  6. VI-DE 3 [Concomitant]
  7. XANAX [Concomitant]
     Active Substance: ALPRAZOLAM
  8. XARELTO [Suspect]
     Active Substance: RIVAROXABAN
     Indication: ATRIAL FIBRILLATION
     Route: 048
     Dates: end: 201505
  9. CORDARONE [Suspect]
     Active Substance: AMIODARONE HYDROCHLORIDE
     Indication: ATRIAL FIBRILLATION
     Route: 048
  10. AGIOLAX [Concomitant]
  11. INDAPAMIDE. [Concomitant]
     Active Substance: INDAPAMIDE
  12. DAFALGAN [Concomitant]
     Active Substance: ACETAMINOPHEN
  13. DUPHALAC [Concomitant]
     Active Substance: LACTULOSE
  14. KCL [Concomitant]
     Active Substance: POTASSIUM CHLORIDE
  15. PRADIF [Concomitant]

REACTIONS (7)
  - Syncope [Recovering/Resolving]
  - Haemorrhagic anaemia [Recovering/Resolving]
  - Lower gastrointestinal haemorrhage [Recovering/Resolving]
  - Hypokalaemia [Recovering/Resolving]
  - Pulmonary congestion [Recovering/Resolving]
  - Melaena [Recovered/Resolved]
  - Dizziness [Recovering/Resolving]

NARRATIVE: CASE EVENT DATE: 201504
